FAERS Safety Report 24188357 (Version 2)
Quarter: 2024Q3

REPORT INFORMATION
  Report Type: Spontaneous
  Country: DE (occurrence: DE)
  Receive Date: 20240808
  Receipt Date: 20240917
  Transmission Date: 20241017
  Serious: No
  Sender: UCB
  Company Number: DE-UCBSA-2024039297

PATIENT

DRUGS (1)
  1. NEUPRO [Suspect]
     Active Substance: ROTIGOTINE
     Indication: Product used for unknown indication
     Dosage: ROTIGOTINE TRANSDERMAL PATCH 4MG/24H
     Route: 062

REACTIONS (2)
  - Product adhesion issue [Unknown]
  - Product dose omission issue [Unknown]
